FAERS Safety Report 5726043-3 (Version None)
Quarter: 2008Q2

REPORT INFORMATION
  Report Type: 
  Country: None (occurrence: None)
  Receive Date: 20080430
  Receipt Date: 20080416
  Transmission Date: 20081010
  Serious: Yes (Other)
  Sender: FDA-Public Use
  Company Number: 163-21880-08041293

PATIENT
  Age: 68 Year
  Sex: Male

DRUGS (1)
  1. REVLIMID [Suspect]
     Indication: MYELODYSPLASTIC SYNDROME
     Dosage: X21 DAYS  EVERY 28 DAYS, ORAL
     Route: 048
     Dates: start: 20071114

REACTIONS (9)
  - BLOOD GLUCOSE DECREASED [None]
  - CONVULSION [None]
  - DIZZINESS [None]
  - INSULIN-REQUIRING TYPE 2 DIABETES MELLITUS [None]
  - LOSS OF CONSCIOUSNESS [None]
  - PARAESTHESIA [None]
  - PARKINSON'S DISEASE [None]
  - RASH [None]
  - TREMOR [None]
